FAERS Safety Report 23240060 (Version 2)
Quarter: 2023Q4

REPORT INFORMATION
  Report Type: Spontaneous
  Country: US (occurrence: US)
  Receive Date: 20231129
  Receipt Date: 20231204
  Transmission Date: 20240110
  Serious: No
  Sender: FDA-Public Use
  Company Number: US-PFIZER INC-PV202300193775

PATIENT
  Age: 15 Year
  Sex: Male

DRUGS (2)
  1. LITFULO [Interacting]
     Active Substance: RITLECITINIB TOSYLATE
     Dosage: 50 MG
  2. XELJANZ [Interacting]
     Active Substance: TOFACITINIB CITRATE
     Dosage: 5 MG, [BID (TWICE A DAY) FOR TWO YEARS]

REACTIONS (1)
  - Drug interaction [Unknown]
